FAERS Safety Report 6225347-8 (Version None)
Quarter: 2009Q2

REPORT INFORMATION
  Report Type: 
  Country: None (occurrence: None)
  Receive Date: 20090612
  Receipt Date: 20090416
  Transmission Date: 20091009
  Serious: No
  Sender: FDA-Public Use
  Company Number: US-ABBOTT-09P-163-0568488-00

PATIENT
  Sex: Male
  Weight: 93.978 kg

DRUGS (2)
  1. HUMIRA [Suspect]
     Indication: CROHN'S DISEASE
     Route: 058
     Dates: start: 20090325
  2. ALBUTEROL [Concomitant]
     Indication: ASTHMA
     Route: 055

REACTIONS (3)
  - PRURITUS [None]
  - RASH [None]
  - RASH PUSTULAR [None]
